FAERS Safety Report 4652518-4 (Version None)
Quarter: 2005Q2

REPORT INFORMATION
  Report Type: 
  Country: None (occurrence: None)
  Receive Date: 20050502
  Receipt Date: 20050421
  Transmission Date: 20051028
  Serious: Yes (Life-Threatening, Other)
  Sender: FDA-Public Use
  Company Number: MEDI-0003229

PATIENT
  Age: 47 Year
  Sex: Male

DRUGS (5)
  1. ETHYOL [Suspect]
     Indication: CHEMOTHERAPY
     Dosage: 375 MG, ONCE, INTRAVENOUS BOLUS
     Route: 040
     Dates: start: 20050418, end: 20050418
  2. ETHYOL [Suspect]
     Indication: RADIOTHERAPY
     Dosage: 375 MG, ONCE, INTRAVENOUS BOLUS
     Route: 040
     Dates: start: 20050418, end: 20050418
  3. RADIATION THERAPY [Concomitant]
  4. CISPLATIN [Concomitant]
  5. FLUOROURACIL [Concomitant]

REACTIONS (3)
  - CARDIAC ARREST [None]
  - HYPOTENSION [None]
  - TREATMENT NONCOMPLIANCE [None]
